FAERS Safety Report 11264556 (Version 3)
Quarter: 2016Q4

REPORT INFORMATION
  Report Type: Report from Study
  Country: SE (occurrence: SE)
  Receive Date: 20150713
  Receipt Date: 20161103
  Transmission Date: 20170206
  Serious: Yes (Other)
  Sender: FDA-Public Use
  Company Number: SE-ROCHE-ITM201504IM014690

PATIENT
  Age: 68 Year
  Sex: Female
  Weight: 75 kg

DRUGS (6)
  1. ACETYLCYSTEIN [Concomitant]
     Active Substance: ACETYLCYSTEINE
     Indication: COUGH
  2. PIRFENIDONE [Suspect]
     Active Substance: PIRFENIDONE
     Indication: IDIOPATHIC PULMONARY FIBROSIS
     Route: 048
     Dates: start: 20140723
  3. OXIS [Concomitant]
     Active Substance: FORMOTEROL FUMARATE
     Indication: COUGH
     Route: 065
     Dates: start: 20130116
  4. PIRFENIDONE [Suspect]
     Active Substance: PIRFENIDONE
     Route: 048
     Dates: start: 20150225, end: 20150225
  5. SYMBICORT [Concomitant]
     Active Substance: BUDESONIDE\FORMOTEROL FUMARATE DIHYDRATE
     Indication: COUGH
     Dosage: 320/9 MICROGRAM
     Route: 065
     Dates: start: 20140710
  6. PANTOPRAZOLE [Concomitant]
     Active Substance: PANTOPRAZOLE SODIUM
     Indication: GASTROOESOPHAGEAL REFLUX DISEASE
     Route: 065

REACTIONS (3)
  - Decreased appetite [Recovered/Resolved]
  - Liver function test abnormal [Recovered/Resolved]
  - Hepatitis A [Unknown]

NARRATIVE: CASE EVENT DATE: 20141028
